FAERS Safety Report 17201855 (Version 2)
Quarter: 2020Q2

REPORT INFORMATION
  Report Type: Spontaneous
  Country: US (occurrence: US)
  Receive Date: 20191226
  Receipt Date: 20200624
  Transmission Date: 20200713
  Serious: Yes (Other)
  Sender: FDA-Public Use
  Company Number: US-PFIZER INC-2019551701

PATIENT
  Age: 69 Year
  Sex: Female
  Weight: 58.97 kg

DRUGS (4)
  1. IBRANCE [Suspect]
     Active Substance: PALBOCICLIB
     Indication: BREAST CANCER METASTATIC
     Dosage: 100 MG, DAILY (21 DAYS ON AND 7 DAYS OFF)
     Route: 048
     Dates: start: 201801, end: 202005
  2. IBRANCE [Suspect]
     Active Substance: PALBOCICLIB
     Indication: BREAST CANCER FEMALE
     Dosage: 100 MG, 1X/DAY
     Route: 048
  3. IBRANCE [Suspect]
     Active Substance: PALBOCICLIB
     Indication: HEPATIC CANCER METASTATIC
  4. FULVESTRANT. [Concomitant]
     Active Substance: FULVESTRANT
     Indication: BREAST CANCER METASTATIC
     Dosage: UNK (TWO INJECTIONS ONCE A MONTH)
     Dates: start: 201801, end: 202005

REACTIONS (2)
  - Neoplasm progression [Not Recovered/Not Resolved]
  - Second primary malignancy [Unknown]

NARRATIVE: CASE EVENT DATE: 202005
